FAERS Safety Report 4679168-8 (Version None)
Quarter: 2005Q2

REPORT INFORMATION
  Report Type: 
  Country: None (occurrence: None)
  Receive Date: 20050526
  Receipt Date: 20050303
  Transmission Date: 20051028
  Serious: Yes (Other)
  Sender: FDA-Public Use
  Company Number: WAES 0503USA00522

PATIENT
  Age: 83 Year
  Sex: Female
  Weight: 56.6996 kg

DRUGS (1)
  1. VYTORIN [Suspect]
     Indication: HYPERLIPIDAEMIA
     Dosage: 10-40 MG/DAILY/PO
     Route: 048
     Dates: start: 20041116, end: 20050208

REACTIONS (2)
  - DIARRHOEA [None]
  - PANCREATITIS [None]
